FAERS Safety Report 7935011-2 (Version None)
Quarter: 2011Q4

REPORT INFORMATION
  Report Type: 
  Country: None (occurrence: None)
  Receive Date: 20111122
  Receipt Date: 20111117
  Transmission Date: 20120403
  Serious: Yes (Life-Threatening)
  Sender: FDA-Public Use
  Company Number: MX-ABBOTT-11P-107-0875361-00

PATIENT

DRUGS (1)
  1. ZEMPLAR [Suspect]
     Indication: PRODUCT USED FOR UNKNOWN INDICATION
     Dosage: 6 CAPSULES

REACTIONS (3)
  - NAUSEA [None]
  - HYPERAESTHESIA [None]
  - ASTHENIA [None]
